FAERS Safety Report 4665860-8 (Version None)
Quarter: 2005Q2

REPORT INFORMATION
  Report Type: 
  Country: None (occurrence: None)
  Receive Date: 20050517
  Receipt Date: 20050225
  Transmission Date: 20051028
  Serious: No
  Sender: FDA-Public Use
  Company Number: S05-USA-01048-01

PATIENT
  Age: 91 Year
  Sex: Female

DRUGS (2)
  1. NAMENDA [Suspect]
     Indication: DEMENTIA ALZHEIMER'S TYPE
     Dosage: 10 MG BID PO
     Route: 048
     Dates: end: 20050224
  2. ZOLOFT [Concomitant]

REACTIONS (3)
  - AGGRESSION [None]
  - CONFUSIONAL STATE [None]
  - GAIT DISTURBANCE [None]
